FAERS Safety Report 19226590 (Version 1)
Quarter: 2021Q2

REPORT INFORMATION
  Report Type: Spontaneous
  Country: CN (occurrence: CN)
  Receive Date: 20210506
  Receipt Date: 20210506
  Transmission Date: 20210717
  Serious: Yes (Life-Threatening)
  Sender: FDA-Public Use
  Company Number: CN-FRESENIUS KABI-FK202104516

PATIENT
  Age: 22 Year
  Sex: Female
  Weight: 49 kg

DRUGS (5)
  1. HAEMOCOAGULASE AGKISTRODON (BATROXOBIN) [Suspect]
     Active Substance: BATROXOBIN
     Indication: HAEMOSTASIS
     Dosage: 2 (UNIT NOT PROVIDED) ONCE DAILY
     Route: 042
     Dates: start: 20210414, end: 20210414
  2. PROPOFOL. [Concomitant]
     Active Substance: PROPOFOL
     Indication: INDUCTION OF ANAESTHESIA
     Dosage: 100 MG ONCE DAILY
     Dates: start: 20210414, end: 20210414
  3. CISATRACURIUM BESILATE [Suspect]
     Active Substance: CISATRACURIUM BESYLATE
     Indication: INDUCTION OF ANAESTHESIA
     Dosage: 6 MG ONCE DAILY
     Route: 042
     Dates: start: 20210414, end: 20210414
  4. SUFENTANIL [Concomitant]
     Active Substance: SUFENTANIL
     Indication: INDUCTION OF ANAESTHESIA
     Dosage: 0.2MG ONCE DAILY
     Dates: start: 20210414, end: 20210414
  5. VOLUVEN [Suspect]
     Active Substance: HYDROXYETHYL STARCH 130/0.4
     Indication: ANAESTHESIA
     Dosage: 500 ML ONCE DAILY
     Route: 041
     Dates: start: 20210414, end: 20210414

REACTIONS (1)
  - Anaphylactic shock [Recovered/Resolved]

NARRATIVE: CASE EVENT DATE: 20210414
